FAERS Safety Report 8428599-9 (Version None)
Quarter: 2012Q2

REPORT INFORMATION
  Report Type: 
  Country: None (occurrence: None)
  Receive Date: 20120606
  Receipt Date: 20120606
  Transmission Date: 20120825
  Serious: No
  Sender: FDA-Public Use
  Company Number: None

PATIENT

DRUGS (2)
  1. COLACE [Concomitant]
  2. DOCUSATE 50 MG [Suspect]
     Indication: CONSTIPATION
     Dosage: 50 MG TABLETS FOR CONSTIPATION FOR 5-6 DAYS
     Dates: start: 20120501, end: 20120511

REACTIONS (1)
  - DRUG INEFFECTIVE [None]
